FAERS Safety Report 8312080-1 (Version None)
Quarter: 2012Q2

REPORT INFORMATION
  Report Type: 
  Country: None (occurrence: None)
  Receive Date: 20120425
  Receipt Date: 20110927
  Transmission Date: 20120825
  Serious: No
  Sender: FDA-Public Use
  Company Number: US-PFIZER INC-2011230212

PATIENT
  Age: 28 Year
  Sex: Female

DRUGS (2)
  1. ZOLOFT [Suspect]
     Dosage: 50 MG, DAILY
  2. ZOLOFT [Suspect]
     Dosage: 25 MG, UNK

REACTIONS (1)
  - CONTUSION [None]
